FAERS Safety Report 9948013 (Version 1)
Quarter: 2014Q1

REPORT INFORMATION
  Report Type: Report from Study
  Country: US (occurrence: US)
  Receive Date: 20140303
  Receipt Date: 20140303
  Transmission Date: 20141002
  Serious: No
  Sender: FDA-Public Use
  Company Number: US-ABBVIE-13P-163-1058883-00

PATIENT
  Age: 36 Year
  Sex: Female

DRUGS (9)
  1. HUMIRA [Suspect]
     Indication: CROHN^S DISEASE
  2. LIALDA [Concomitant]
     Indication: CROHN^S DISEASE
  3. AMBIEN [Concomitant]
     Indication: INSOMNIA
     Dosage: NIGHTLY, AS NEEDED
  4. WARFARIN [Concomitant]
     Indication: PERIPHERAL EMBOLISM
     Dosage: 5 MG DAILY (EXCEPT THURSDAY)
  5. WARFARIN [Concomitant]
     Dosage: THURSDAY
  6. PROTONIX [Concomitant]
     Indication: DYSPEPSIA
     Dosage: 40 MG DAILY
  7. BENADRYL [Concomitant]
     Indication: PRODUCT USED FOR UNKNOWN INDICATION
     Dosage: TWO HOURS BEFORE HUMIRA PEN
  8. BENADRYL [Concomitant]
     Dosage: FOUR TO SIX HOURS POST HUMIRA PEN
  9. BENADRYL [Concomitant]
     Dosage: EVERY FOUR TO SIX HOURS WHILE SYMPTOMS PERSISTED

REACTIONS (4)
  - Injection site bruising [Recovering/Resolving]
  - Injection site urticaria [Recovering/Resolving]
  - Injection site erythema [Recovering/Resolving]
  - Injection site pain [Recovering/Resolving]
